FAERS Safety Report 8763695 (Version 2)
Quarter: 2013Q4

REPORT INFORMATION
  Report Type: Report from Study
  Country: JP (occurrence: JP)
  Receive Date: 20120828
  Receipt Date: 20131031
  Transmission Date: 20140711
  Serious: Yes (Other)
  Sender: FDA-Public Use
  Company Number: JP-VERTEX PHARMACEUTICAL INC.-AE-2012-010163

PATIENT
  Age: 70 Year
  Sex: Female

DRUGS (11)
  1. VX-950 (TELAPREVIR) [Suspect]
     Indication: CHRONIC HEPATITIS C
     Dosage: 1500 MG, QD
     Route: 048
     Dates: start: 20120515, end: 20120806
  2. RIBAVIRIN [Suspect]
     Indication: CHRONIC HEPATITIS C
     Dosage: 400 MG, QD
     Route: 048
     Dates: start: 20120515, end: 20120702
  3. RIBAVIRIN [Suspect]
     Dosage: 300 MG, QD
     Route: 048
     Dates: start: 20120703, end: 20120709
  4. RIBAVIRIN [Suspect]
     Dosage: 200 MG, QD
     Route: 048
     Dates: start: 20120710, end: 20120806
  5. PEGINTRON [Suspect]
     Indication: CHRONIC HEPATITIS C
     Dosage: 1.3 ?G/KG, QW
     Route: 058
     Dates: start: 20120515, end: 20120731
  6. AMLODIN [Concomitant]
     Dosage: 10 MG, QD
     Route: 048
  7. GASTER D [Concomitant]
     Dosage: 20 MG, QD
     Route: 048
  8. DIOVAN [Concomitant]
     Dosage: 80 MG, QD
     Route: 048
  9. FLUITRAN [Concomitant]
     Dosage: 2 MG, QD
     Route: 048
     Dates: end: 20120529
  10. XYZAL [Concomitant]
     Dosage: 5 MG, QD
     Route: 048
     Dates: start: 20120515, end: 20120806
  11. L CARTIN [Concomitant]
     Dosage: 900 MG, QD
     Route: 048
     Dates: start: 20120515, end: 20120806

REACTIONS (2)
  - Blood urea increased [Recovered/Resolved]
  - Anaemia [Recovered/Resolved]
